FAERS Safety Report 20814006 (Version 2)
Quarter: 2022Q2

REPORT INFORMATION
  Report Type: Spontaneous
  Country: CN (occurrence: CN)
  Receive Date: 20220511
  Receipt Date: 20220616
  Transmission Date: 20220720
  Serious: Yes (Hospitalization, Other)
  Sender: FDA-Public Use
  Company Number: CN-GLAXOSMITHKLINE-CN2022APC075373

PATIENT

DRUGS (2)
  1. HEPSERA [Suspect]
     Active Substance: ADEFOVIR DIPIVOXIL
     Indication: Chronic hepatitis B
     Dosage: 1 DF, QD 10 MG
     Route: 048
     Dates: start: 200406
  2. HEPTODIN [Suspect]
     Active Substance: LAMIVUDINE
     Indication: Chronic hepatitis B
     Dosage: UNK
     Route: 048
     Dates: start: 2000

REACTIONS (7)
  - Liver transplant [Recovered/Resolved]
  - Liver transplant rejection [Recovered/Resolved]
  - Hepatic cirrhosis [Unknown]
  - Stress [Unknown]
  - Viral load increased [Unknown]
  - Blood bilirubin increased [Recovered/Resolved]
  - Drug monitoring procedure not performed [Unknown]

NARRATIVE: CASE EVENT DATE: 20040702
